FAERS Safety Report 25719583 (Version 4)
Quarter: 2025Q4

REPORT INFORMATION
  Report Type: Spontaneous
  Country: US (occurrence: US)
  Receive Date: 20250825
  Receipt Date: 20251007
  Transmission Date: 20260118
  Serious: No
  Sender: SANDOZ
  Company Number: US-SANDOZ-SDZ2025US060024

PATIENT
  Age: 64 Year
  Sex: Female

DRUGS (1)
  1. COMBIPATCH [Suspect]
     Active Substance: ESTRADIOL\NORETHINDRONE ACETATE
     Indication: Menopausal symptoms
     Dosage: 0.05/0.14 MG, ON SUNDAYS AND THURSDAYS
     Route: 062
     Dates: start: 2009

REACTIONS (3)
  - Insomnia [Recovered/Resolved]
  - Therapeutic product effect incomplete [Recovering/Resolving]
  - Product storage error [Recovered/Resolved]

NARRATIVE: CASE EVENT DATE: 20250801
